FAERS Safety Report 7678663-7 (Version None)
Quarter: 2011Q3

REPORT INFORMATION
  Report Type: 
  Country: None (occurrence: None)
  Receive Date: 20110811
  Receipt Date: 20110803
  Transmission Date: 20111222
  Serious: Yes (Hospitalization)
  Sender: FDA-Public Use
  Company Number: US-US-EMD SERONO, INC.-7075231

PATIENT
  Sex: Male

DRUGS (3)
  1. REBIF [Suspect]
     Indication: PRODUCT USED FOR UNKNOWN INDICATION
     Route: 058
     Dates: start: 20110627
  2. STEROIDS [Suspect]
     Dates: start: 20110802
  3. UNSPECIFIED ANALGESIC [Concomitant]
     Indication: PREMEDICATION

REACTIONS (3)
  - PARAESTHESIA [None]
  - CONFUSIONAL STATE [None]
  - HYPOAESTHESIA [None]
